FAERS Safety Report 5497225-3 (Version None)
Quarter: 2007Q4

REPORT INFORMATION
  Report Type: 
  Country: None (occurrence: None)
  Receive Date: 20071023
  Receipt Date: 20071009
  Transmission Date: 20080405
  Serious: Yes (Other)
  Sender: FDA-Public Use
  Company Number: US021464

PATIENT
  Age: 49 Year
  Sex: Female

DRUGS (3)
  1. FENTANYL [Suspect]
  2. PENTOTHAL [Suspect]
  3. CURACIT [Suspect]

REACTIONS (1)
  - ANAPHYLACTIC REACTION [None]
